FAERS Safety Report 24346829 (Version 1)
Quarter: 2024Q3

REPORT INFORMATION
  Report Type: Spontaneous
  Country: ZA (occurrence: ZA)
  Receive Date: 20240921
  Receipt Date: 20240921
  Transmission Date: 20241017
  Serious: Yes (Other)
  Sender: MACLEODS
  Company Number: ZA-MACLEODS PHARMA-MAC2024048998

PATIENT

DRUGS (33)
  1. HYDROCHLOROTHIAZIDE\VALSARTAN [Suspect]
     Active Substance: HYDROCHLOROTHIAZIDE\VALSARTAN
     Indication: Hypertension
     Route: 048
  2. ATIVAN [Suspect]
     Active Substance: LORAZEPAM
     Indication: Anxiety
     Dosage: UNDER THE TONGUE
     Route: 060
  3. DORMONOCT [Suspect]
     Active Substance: LOPRAZOLAM
     Indication: Insomnia
     Dosage: AT NIGHT
     Route: 048
  4. DULCOLAX (BISACODYL) [Suspect]
     Active Substance: BISACODYL
     Indication: Product used for unknown indication
     Dosage: AT NIGHT
     Route: 048
  5. DULCOLAX (BISACODYL) [Suspect]
     Active Substance: BISACODYL
     Dosage: PER RECTUM
     Route: 054
  6. POTASSIUM CHLORIDE [Suspect]
     Active Substance: POTASSIUM CHLORIDE
     Indication: Hypokalaemia
     Route: 048
  7. SIMVASTATIN [Suspect]
     Active Substance: SIMVASTATIN
     Indication: Blood cholesterol
     Dosage: AT NIGHT
     Route: 048
  8. GLUCOPHAGE XR [Suspect]
     Active Substance: METFORMIN HYDROCHLORIDE
     Indication: Diabetes mellitus
     Route: 048
  9. FUROSEMIDE [Suspect]
     Active Substance: FUROSEMIDE
     Indication: Hypertension
     Route: 048
  10. ASPIRIN [Suspect]
     Active Substance: ASPIRIN
     Indication: Anticoagulant therapy
     Route: 048
  11. NEUROBION [Suspect]
     Active Substance: CYANOCOBALAMIN\PYRIDOXINE\THIAMINE
     Indication: Product used for unknown indication
     Route: 058
  12. ESOMEPRAZOLE [Suspect]
     Active Substance: ESOMEPRAZOLE
     Indication: Ulcer
     Route: 065
  13. BUDESONIDE [Suspect]
     Active Substance: BUDESONIDE
     Indication: Product used for unknown indication
  14. CLARITHROMYCIN [Suspect]
     Active Substance: CLARITHROMYCIN
     Indication: Product used for unknown indication
     Route: 048
  15. SODIUM CHLORIDE [Suspect]
     Active Substance: SODIUM CHLORIDE
     Indication: Product used for unknown indication
     Dosage: AS DIRECTED BY DOCTOR
     Route: 045
  16. SACCHAROMYCES CEREVISIAE [Suspect]
     Active Substance: SACCHAROMYCES CEREVISIAE
     Indication: Product used for unknown indication
     Route: 048
  17. ACETAMINOPHEN\CAFFEINE\CODEINE PHOSPHATE\MEPROBAMATE [Suspect]
     Active Substance: ACETAMINOPHEN\CAFFEINE\CODEINE PHOSPHATE\MEPROBAMATE
     Indication: Pain
     Route: 048
  18. TRAMADOL [Suspect]
     Active Substance: TRAMADOL
     Indication: Pain
     Route: 048
  19. FOLIC ACID [Suspect]
     Active Substance: FOLIC ACID
     Indication: Asthenia
     Route: 048
  20. TRAMADOL [Suspect]
     Active Substance: TRAMADOL
     Indication: Pain
     Dosage: 50 MG TAKE TWO CAPSULES TWICE A DAY
     Route: 048
  21. VAGIFEM [Suspect]
     Active Substance: ESTRADIOL
     Indication: Hormone replacement therapy
     Dosage: INSERT ONE PER VAGINA
     Route: 067
  22. RUPATADINE FUMARATE [Suspect]
     Active Substance: RUPATADINE FUMARATE
     Indication: Hypersensitivity
     Dosage: AS DIRECTED
     Route: 045
  23. CHLORPHENIRAMINE\PHENYLEPHRINE\PHENYLPROPANOLAMINE\PHENYLTOLOXAMINE [Suspect]
     Active Substance: CHLORPHENIRAMINE\PHENYLEPHRINE\PHENYLPROPANOLAMINE\PHENYLTOLOXAMINE
     Indication: Product used for unknown indication
     Dosage: AS DIRECTED
     Route: 048
  24. DICLOFENAC DIETHYLAMINE [Suspect]
     Active Substance: DICLOFENAC DIETHYLAMINE
     Indication: Product used for unknown indication
     Dosage: AS DIRECTED
     Route: 061
  25. XARELTO [Suspect]
     Active Substance: RIVAROXABAN
     Indication: Anticoagulant therapy
     Route: 065
  26. NEVANAC [Suspect]
     Active Substance: NEPAFENAC
     Indication: Product used for unknown indication
     Dosage: AS DIRECTED
     Route: 048
  27. ARCOXIA [Suspect]
     Active Substance: ETORICOXIB
     Indication: Product used for unknown indication
     Dosage: COMPLETE COURSE
     Route: 048
  28. DEXAMETHASONE SODIUM PHOSPHATE [Suspect]
     Active Substance: DEXAMETHASONE PHOSPHATE\DEXAMETHASONE SODIUM PHOSPHATE
     Indication: Product used for unknown indication
     Dosage: INSTIL ONE DROP BOTH EYES
  29. LOTEPREDNOL ETABONATE [Suspect]
     Active Substance: LOTEPREDNOL ETABONATE
     Indication: Product used for unknown indication
     Dosage: C INSTIL ONE DROP THREE TIMES A DAY INTO THE LEFT EYE
  30. CELEBREX [Suspect]
     Active Substance: CELECOXIB
     Indication: Pain
     Route: 048
  31. LEVOCETIRIZINE DIHYDROCHLORIDE [Suspect]
     Active Substance: LEVOCETIRIZINE DIHYDROCHLORIDE
     Indication: Hypersensitivity
     Dosage: 5 MG AS PRESCRIBED
     Route: 065
  32. LORATADINE\PSEUDOEPHEDRINE SULFATE [Suspect]
     Active Substance: LORATADINE\PSEUDOEPHEDRINE SULFATE
     Indication: Product used for unknown indication
     Dosage: AS PRESCRIBED
     Route: 065
  33. ACETAMINOPHEN\CHLORPHENIRAMINE\CODEINE\PSEUDOEPHEDRINE [Suspect]
     Active Substance: ACETAMINOPHEN\CHLORPHENIRAMINE\CODEINE\PSEUDOEPHEDRINE
     Indication: Product used for unknown indication
     Dosage: AS PRESCRIBED
     Route: 065

REACTIONS (2)
  - Neoplasm malignant [Unknown]
  - Blood pressure inadequately controlled [Unknown]
